FAERS Safety Report 21269751 (Version 2)
Quarter: 2022Q4

REPORT INFORMATION
  Report Type: Report from Study
  Country: US (occurrence: US)
  Receive Date: 20220830
  Receipt Date: 20221205
  Transmission Date: 20230113
  Serious: Yes (Hospitalization)
  Sender: FDA-Public Use
  Company Number: US-TAKEDA-2022TUS059581

PATIENT
  Sex: Male

DRUGS (8)
  1. TEDUGLUTIDE [Suspect]
     Active Substance: TEDUGLUTIDE
     Indication: Short-bowel syndrome
     Dosage: 0.53 MILLIGRAM, QD
     Route: 058
     Dates: start: 20220525
  2. TEDUGLUTIDE [Suspect]
     Active Substance: TEDUGLUTIDE
     Indication: Short-bowel syndrome
     Dosage: 0.53 MILLIGRAM, QD
     Route: 058
     Dates: start: 20220525
  3. TEDUGLUTIDE [Suspect]
     Active Substance: TEDUGLUTIDE
     Indication: Short-bowel syndrome
     Dosage: 0.53 MILLIGRAM, QD
     Route: 058
     Dates: start: 20220525
  4. TEDUGLUTIDE [Suspect]
     Active Substance: TEDUGLUTIDE
     Indication: Short-bowel syndrome
     Dosage: 0.53 MILLIGRAM, QD
     Route: 058
     Dates: start: 20220525
  5. TEDUGLUTIDE [Suspect]
     Active Substance: TEDUGLUTIDE
     Dosage: 0.53 MILLIGRAM, QD
     Route: 058
     Dates: start: 202205
  6. TEDUGLUTIDE [Suspect]
     Active Substance: TEDUGLUTIDE
     Dosage: 0.53 MILLIGRAM, QD
     Route: 058
     Dates: start: 202205
  7. TEDUGLUTIDE [Suspect]
     Active Substance: TEDUGLUTIDE
     Dosage: 0.53 MILLIGRAM, QD
     Route: 058
     Dates: start: 202205
  8. TEDUGLUTIDE [Suspect]
     Active Substance: TEDUGLUTIDE
     Dosage: 0.53 MILLIGRAM, QD
     Route: 058
     Dates: start: 202205

REACTIONS (2)
  - Gastrointestinal viral infection [Recovered/Resolved]
  - Product packaging quantity issue [Unknown]
